FAERS Safety Report 15011347 (Version 1)
Quarter: 2018Q2

REPORT INFORMATION
  Report Type: Spontaneous
  Country: IT (occurrence: IT)
  Receive Date: 20180614
  Receipt Date: 20180614
  Transmission Date: 20180711
  Serious: No
  Sender: FDA-Public Use
  Company Number: IT-B. BRAUN MEDICAL INC.-2049416

PATIENT
  Sex: Female

DRUGS (2)
  1. CIPROXIN [Suspect]
     Active Substance: CIPROFLOXACIN
  2. METRONIDAZOLE INJECTION USP (5 MG/ML) IN PAB? PLASTIC CONTAINER [Suspect]
     Active Substance: METRONIDAZOLE
     Indication: GASTRIC POLYPECTOMY
     Dates: start: 20170918

REACTIONS (1)
  - Erythema [Recovering/Resolving]

NARRATIVE: CASE EVENT DATE: 20170918
